FAERS Safety Report 10278883 (Version 2)
Quarter: 2014Q3

REPORT INFORMATION
  Report Type: Spontaneous
  Country: IR (occurrence: IR)
  Receive Date: 20140706
  Receipt Date: 20140711
  Transmission Date: 20150326
  Serious: Yes (Death, Hospitalization)
  Sender: FDA-Public Use
  Company Number: PHHY2014IR082288

PATIENT
  Age: 45 Year
  Sex: Male

DRUGS (3)
  1. CICLOSPORIN [Suspect]
     Active Substance: CYCLOSPORINE
     Indication: IMMUNOSUPPRESSION
  2. AZATHIOPRINE. [Suspect]
     Active Substance: AZATHIOPRINE
  3. PREDNISOLONE. [Suspect]
     Active Substance: PREDNISOLONE

REACTIONS (12)
  - Pyrexia [Fatal]
  - Rales [Fatal]
  - Loss of consciousness [Fatal]
  - Pneumocystis jirovecii pneumonia [Fatal]
  - Tachypnoea [Fatal]
  - Pneumothorax [Fatal]
  - Hypoxia [Fatal]
  - Dyspnoea [Fatal]
  - Ataxia [Fatal]
  - Apnoea [Fatal]
  - Cough [Fatal]
  - Haemoptysis [Fatal]
